FAERS Safety Report 9121203 (Version 2)
Quarter: 2013Q3

REPORT INFORMATION
  Report Type: Spontaneous
  Country: US (occurrence: US)
  Receive Date: 20130225
  Receipt Date: 20130703
  Transmission Date: 20140515
  Serious: Yes (Other)
  Sender: FDA-Public Use
  Company Number: US-BRISTOL-MYERS SQUIBB COMPANY-16485146

PATIENT
  Age: 70 Year
  Sex: Female
  Weight: 95.24 kg

DRUGS (9)
  1. COUMADIN [Suspect]
  2. LYRICA [Suspect]
     Indication: PAIN IN EXTREMITY
     Dosage: CAPSULE
     Route: 048
  3. LYRICA [Suspect]
     Indication: BURNING SENSATION
     Dosage: CAPSULE
     Route: 048
  4. PROZAC [Concomitant]
  5. CRESTOR [Concomitant]
     Indication: BLOOD CHOLESTEROL INCREASED
  6. HYDROCHLOROTHIAZIDE [Concomitant]
  7. MINERALS [Concomitant]
     Indication: MACULAR DEGENERATION
  8. MULTIVITAMINS [Concomitant]
     Indication: MACULAR DEGENERATION
  9. VITAMINS [Concomitant]

REACTIONS (6)
  - Myocardial infarction [Unknown]
  - Cerebrovascular accident [Unknown]
  - Renal impairment [Recovering/Resolving]
  - White blood cell count increased [Unknown]
  - International normalised ratio decreased [Unknown]
  - Musculoskeletal stiffness [Unknown]
